FAERS Safety Report 12694367 (Version 1)
Quarter: 2016Q3

REPORT INFORMATION
  Report Type: Report from Study
  Country: US (occurrence: US)
  Receive Date: 20160829
  Receipt Date: 20160829
  Transmission Date: 20161109
  Serious: Yes (Hospitalization, Other)
  Sender: FDA-Public Use
  Company Number: US-GILEAD-2016-0230813

PATIENT
  Age: 71 Year
  Sex: Female

DRUGS (18)
  1. AMBRISENTAN [Suspect]
     Active Substance: AMBRISENTAN
     Indication: SYSTEMIC LUPUS ERYTHEMATOSUS
     Dosage: 5 MG, QD
     Route: 065
     Dates: start: 20151118
  2. SYNTHROID [Concomitant]
     Active Substance: LEVOTHYROXINE SODIUM
  3. PRAVASTATIN. [Concomitant]
     Active Substance: PRAVASTATIN
  4. LOSARTAN. [Concomitant]
     Active Substance: LOSARTAN
  5. TOPIRAMATE. [Concomitant]
     Active Substance: TOPIRAMATE
  6. GLYBURIDE. [Concomitant]
     Active Substance: GLYBURIDE
  7. BYSTOLIC [Concomitant]
     Active Substance: NEBIVOLOL HYDROCHLORIDE
  8. COMBIVENT [Concomitant]
     Active Substance: ALBUTEROL SULFATE\IPRATROPIUM BROMIDE
  9. CYMBALTA [Concomitant]
     Active Substance: DULOXETINE HYDROCHLORIDE
  10. HUMALOG [Concomitant]
     Active Substance: INSULIN LISPRO
  11. HUMULIN NOS [Concomitant]
     Active Substance: INSULIN HUMAN
  12. ADVAIR HFA [Concomitant]
     Active Substance: FLUTICASONE PROPIONATE\SALMETEROL XINAFOATE
  13. PREDNISONE. [Concomitant]
     Active Substance: PREDNISONE
  14. PLAVIX [Concomitant]
     Active Substance: CLOPIDOGREL BISULFATE
  15. ALBUTEROL                          /00139501/ [Concomitant]
     Active Substance: ALBUTEROL
  16. PERCOCET                           /00446701/ [Concomitant]
     Active Substance: ACETAMINOPHEN\OXYCODONE HYDROCHLORIDE\OXYCODONE TEREPHTHALATE
  17. METOPROLOL. [Concomitant]
     Active Substance: METOPROLOL
  18. METFORMIN [Concomitant]
     Active Substance: METFORMIN HYDROCHLORIDE

REACTIONS (3)
  - Leg amputation [Unknown]
  - Off label use [Unknown]
  - Drug dose omission [Unknown]

NARRATIVE: CASE EVENT DATE: 201608
